FAERS Safety Report 14843271 (Version 4)
Quarter: 2018Q2

REPORT INFORMATION
  Report Type: Spontaneous
  Country: DE (occurrence: DE)
  Receive Date: 20180503
  Receipt Date: 20180608
  Transmission Date: 20180711
  Serious: Yes (Hospitalization, Other)
  Sender: FDA-Public Use
  Company Number: DE-PFIZER INC-2018173666

PATIENT
  Age: 80 Year
  Sex: Male
  Weight: 100 kg

DRUGS (3)
  1. MARCUMAR [Concomitant]
     Active Substance: PHENPROCOUMON
     Indication: ATRIAL FIBRILLATION
     Dosage: UNK
  2. CAVERJECT [Suspect]
     Active Substance: ALPROSTADIL
     Dosage: 10 UG, APPROXIMATELY EVERY 14 DAYS
     Dates: start: 2001
  3. METFORMIN [Concomitant]
     Active Substance: METFORMIN HYDROCHLORIDE
     Dosage: UNK

REACTIONS (2)
  - Needle issue [Unknown]
  - Foreign body in reproductive tract [Unknown]

NARRATIVE: CASE EVENT DATE: 20180422
